FAERS Safety Report 20039784 (Version 9)
Quarter: 2023Q1

REPORT INFORMATION
  Report Type: Report from Study
  Country: CN (occurrence: CN)
  Receive Date: 20211106
  Receipt Date: 20230306
  Transmission Date: 20230417
  Serious: Yes (Death, Life-Threatening, Hospitalization, Other)
  Sender: FDA-Public Use
  Company Number: CN-TAKEDA-2021TUS067569

PATIENT
  Age: 62 Year
  Sex: Male
  Weight: 69 kg

DRUGS (74)
  1. IXAZOMIB [Suspect]
     Active Substance: IXAZOMIB
     Indication: Plasma cell myeloma
     Dosage: 4 MILLIGRAM, 1/WEEK
     Route: 048
     Dates: start: 20210701
  2. CHLORHEXIDINE [Concomitant]
     Active Substance: CHLORHEXIDINE
     Indication: Prophylaxis
     Dosage: UNK
     Route: 050
     Dates: start: 20210714, end: 2021
  3. GLYCERIN [Concomitant]
     Active Substance: GLYCERIN
     Indication: Laxative supportive care
     Dosage: 20 MILLILITER
     Route: 054
     Dates: start: 20210723, end: 2021
  4. INTACTED PROTEIN ENTERAL NUTRITION [Concomitant]
     Indication: Malnutrition
     Dosage: UNK
     Route: 048
     Dates: start: 20210727, end: 2021
  5. LENALIDOMIDE [Concomitant]
     Active Substance: LENALIDOMIDE
     Indication: Plasma cell myeloma
     Dosage: 10 MILLIGRAM
     Route: 048
     Dates: start: 20210727, end: 20210816
  6. LENALIDOMIDE [Concomitant]
     Active Substance: LENALIDOMIDE
     Dosage: 10 MILLIGRAM, QOD
     Route: 048
     Dates: start: 20210824, end: 2021
  7. TRIMETAZIDINE DIHYDROCHLORIDE [Concomitant]
     Active Substance: TRIMETAZIDINE DIHYDROCHLORIDE
     Indication: Myocarditis
     Dosage: 20 MILLIGRAM, TID
     Route: 048
     Dates: start: 20210731, end: 20210829
  8. OXYCODONE HYDROCHLORIDE [Concomitant]
     Active Substance: OXYCODONE HYDROCHLORIDE
     Indication: Analgesic therapy
     Dosage: 10 MILLIGRAM, QD
     Route: 048
     Dates: start: 20210810, end: 20210811
  9. OXYCODONE HYDROCHLORIDE [Concomitant]
     Active Substance: OXYCODONE HYDROCHLORIDE
     Dosage: 10 MILLIGRAM
     Route: 048
     Dates: start: 20210827, end: 20210910
  10. OXYCODONE HYDROCHLORIDE [Concomitant]
     Active Substance: OXYCODONE HYDROCHLORIDE
     Dosage: 10 MILLIGRAM
     Route: 048
     Dates: start: 20210811, end: 20210911
  11. OXYCODONE HYDROCHLORIDE [Concomitant]
     Active Substance: OXYCODONE HYDROCHLORIDE
     Dosage: 10 MILLIGRAM
     Route: 048
     Dates: start: 20210730, end: 20210730
  12. OXYCODONE HYDROCHLORIDE [Concomitant]
     Active Substance: OXYCODONE HYDROCHLORIDE
     Dosage: 10 MILLIGRAM
     Route: 048
     Dates: start: 20210714, end: 20210730
  13. TRIMETAZIDINE DIHYDROCHLORIDE [Concomitant]
     Active Substance: TRIMETAZIDINE DIHYDROCHLORIDE
     Indication: Cardiomyopathy
     Dosage: 20 MILLIGRAM, TID
     Route: 048
     Dates: start: 20210811, end: 2021
  14. TRIMETAZIDINE DIHYDROCHLORIDE [Concomitant]
     Active Substance: TRIMETAZIDINE DIHYDROCHLORIDE
     Dosage: 20 MILLIGRAM, TID
     Route: 048
     Dates: start: 20210827, end: 20210910
  15. TRIMETAZIDINE DIHYDROCHLORIDE [Concomitant]
     Active Substance: TRIMETAZIDINE DIHYDROCHLORIDE
     Dosage: 20 MILLIGRAM, TID
     Route: 048
     Dates: start: 20210724, end: 20210727
  16. TRIMETAZIDINE DIHYDROCHLORIDE [Concomitant]
     Active Substance: TRIMETAZIDINE DIHYDROCHLORIDE
     Dosage: 20 MILLIGRAM, TID
     Route: 048
     Dates: start: 20210731, end: 20210829
  17. GLUTATHIONE REDUCED [Concomitant]
     Indication: Prophylaxis
     Dosage: 1.8 GRAM, QD
     Route: 042
     Dates: start: 20210810, end: 2021
  18. GLUTATHIONE REDUCED [Concomitant]
     Dosage: 1.8 GRAM, QD
     Route: 042
     Dates: start: 20210811, end: 20210811
  19. GLUTATHIONE REDUCED [Concomitant]
     Dosage: 1.8 GRAM, QD
     Route: 042
     Dates: start: 20210819, end: 20210819
  20. GLUTATHIONE REDUCED [Concomitant]
     Dosage: 1.8 GRAM, QD
     Route: 042
     Dates: start: 20210730, end: 20210730
  21. ESOMEPRAZOLE SODIUM [Concomitant]
     Active Substance: ESOMEPRAZOLE SODIUM
     Indication: Prophylaxis
     Dosage: 40 GRAM, QD
     Route: 042
     Dates: start: 20210810, end: 20210811
  22. ESOMEPRAZOLE SODIUM [Concomitant]
     Active Substance: ESOMEPRAZOLE SODIUM
     Dosage: 40 MILLIGRAM, QD
     Route: 042
     Dates: start: 20210811, end: 20210811
  23. ESOMEPRAZOLE SODIUM [Concomitant]
     Active Substance: ESOMEPRAZOLE SODIUM
     Dosage: 40 MILLIGRAM, QD
     Route: 042
     Dates: start: 20210819, end: 20210827
  24. Shen mai [Concomitant]
     Indication: Nutritional supplementation
     Dosage: 40 MILLILITER, QD
     Route: 042
     Dates: start: 20210811, end: 20210824
  25. PHOSPHOLIPID [Concomitant]
     Active Substance: PHOSPHOLIPID
     Indication: Prophylaxis
     Dosage: 456 MILLIGRAM, TID
     Route: 048
     Dates: start: 20210813, end: 2021
  26. ACYCLOVIR [Concomitant]
     Active Substance: ACYCLOVIR
     Indication: Antiviral prophylaxis
     Dosage: 200 MILLIGRAM, BID
     Route: 048
     Dates: start: 20210816, end: 2021
  27. ACYCLOVIR [Concomitant]
     Active Substance: ACYCLOVIR
     Dosage: 200 MILLIGRAM, BID
     Route: 048
     Dates: start: 20210817, end: 2021
  28. Dormicum [Concomitant]
     Indication: Plasma cell myeloma
     Dosage: 20 MILLIGRAM, QD
     Route: 042
     Dates: start: 20210818, end: 20210818
  29. ADEMETIONINE BUTANEDISULFONATE [Concomitant]
     Active Substance: ADEMETIONINE BUTANEDISULFONATE
     Indication: Prophylaxis
     Dosage: 0.5 GRAM, TID
     Route: 048
     Dates: start: 20210819, end: 2021
  30. AMMONIUM GLYCYRRHIZATE\CYSTEINE [Concomitant]
     Active Substance: AMMONIUM GLYCYRRHIZATE\CYSTEINE
     Indication: Prophylaxis
     Dosage: 250 MILLILITER, QD
     Route: 042
     Dates: start: 20210819, end: 20210827
  31. AMMONIUM GLYCYRRHIZATE\CYSTEINE [Concomitant]
     Active Substance: AMMONIUM GLYCYRRHIZATE\CYSTEINE
     Dosage: 250 MILLILITER, QD
     Route: 042
     Dates: start: 20210730, end: 20210730
  32. ERYTHROPOIETIN [Concomitant]
     Active Substance: ERYTHROPOIETIN
     Indication: Red blood cell count
     Dosage: UNK UNK, QD
     Route: 058
     Dates: start: 20210810, end: 20210810
  33. ERYTHROPOIETIN [Concomitant]
     Active Substance: ERYTHROPOIETIN
     Dosage: UNK, QD
     Route: 042
     Dates: start: 20210813, end: 20210813
  34. ERYTHROPOIETIN [Concomitant]
     Active Substance: ERYTHROPOIETIN
     Dosage: UNK, QD
     Route: 042
     Dates: start: 20210816, end: 20210816
  35. ERYTHROPOIETIN [Concomitant]
     Active Substance: ERYTHROPOIETIN
     Dosage: UNK UNK, QD
     Route: 058
     Dates: start: 20210820, end: 20210820
  36. ERYTHROPOIETIN [Concomitant]
     Active Substance: ERYTHROPOIETIN
     Dosage: UNK UNK, QD
     Route: 042
     Dates: start: 20210823, end: 20210823
  37. ERYTHROPOIETIN [Concomitant]
     Active Substance: ERYTHROPOIETIN
     Dosage: UNK UNK, QD
     Route: 042
     Dates: start: 20210825, end: 20210825
  38. ONDANSETRON HYDROCHLORIDE [Concomitant]
     Active Substance: ONDANSETRON HYDROCHLORIDE
     Indication: Antiemetic supportive care
     Dosage: 8 MILLIGRAM, QD
     Route: 042
     Dates: start: 20210819, end: 20210819
  39. PROMETHAZINE HYDROCHLORIDE [Concomitant]
     Active Substance: PROMETHAZINE HYDROCHLORIDE
     Indication: Antiallergic therapy
     Dosage: 25 MILLIGRAM, QD
     Route: 030
     Dates: start: 20210820, end: 20210820
  40. PROMETHAZINE HYDROCHLORIDE [Concomitant]
     Active Substance: PROMETHAZINE HYDROCHLORIDE
     Dosage: 25 MILLIGRAM, QD
     Route: 042
     Dates: start: 20210825, end: 2021
  41. PROMETHAZINE HYDROCHLORIDE [Concomitant]
     Active Substance: PROMETHAZINE HYDROCHLORIDE
     Dosage: 25 MILLIGRAM, QD
     Route: 030
     Dates: start: 20210827, end: 20210827
  42. PROBIOTICS NOS [Concomitant]
     Active Substance: PROBIOTICS NOS
     Indication: Dysbiosis
     Dosage: UNK
     Route: 048
     Dates: start: 20210824, end: 2021
  43. HUMAN RED BLOOD CELL [Concomitant]
     Active Substance: HUMAN RED BLOOD CELL
     Indication: Anaemia
     Dosage: UNK UNK, QD
     Route: 042
     Dates: start: 20210818, end: 20210818
  44. HUMAN RED BLOOD CELL [Concomitant]
     Active Substance: HUMAN RED BLOOD CELL
     Indication: Red blood cell count
     Dosage: UNK UNK, QD
     Route: 042
     Dates: start: 20210820, end: 20210820
  45. HUMAN RED BLOOD CELL [Concomitant]
     Active Substance: HUMAN RED BLOOD CELL
     Dosage: UNK UNK, QD
     Route: 042
     Dates: start: 20210825, end: 20210825
  46. HUMAN RED BLOOD CELL [Concomitant]
     Active Substance: HUMAN RED BLOOD CELL
     Dosage: UNK UNK, QD
     Route: 042
     Dates: start: 20210827, end: 20210827
  47. HUMAN RED BLOOD CELL [Concomitant]
     Active Substance: HUMAN RED BLOOD CELL
     Dosage: UNK UNK, QD
     Route: 042
     Dates: start: 20210728, end: 20210728
  48. DEXAMETHASONE SODIUM PHOSPHATE [Concomitant]
     Active Substance: DEXAMETHASONE SODIUM PHOSPHATE
     Indication: Antiallergic therapy
     Dosage: 10 MILLIGRAM, QD
     Route: 042
     Dates: start: 20210818, end: 20210818
  49. DEXAMETHASONE SODIUM PHOSPHATE [Concomitant]
     Active Substance: DEXAMETHASONE SODIUM PHOSPHATE
     Indication: Plasma cell myeloma
     Dosage: 5 MILLIGRAM, QD
     Route: 042
     Dates: start: 20210826, end: 2021
  50. DEXAMETHASONE SODIUM PHOSPHATE [Concomitant]
     Active Substance: DEXAMETHASONE SODIUM PHOSPHATE
     Dosage: 20 MILLIGRAM, QD
     Route: 042
     Dates: start: 20210827, end: 20210827
  51. DEXAMETHASONE SODIUM PHOSPHATE [Concomitant]
     Active Substance: DEXAMETHASONE SODIUM PHOSPHATE
     Dosage: 5 MILLIGRAM
     Route: 042
     Dates: start: 20210727, end: 20210727
  52. DEXAMETHASONE SODIUM PHOSPHATE [Concomitant]
     Active Substance: DEXAMETHASONE SODIUM PHOSPHATE
     Dosage: 5 MILLIGRAM
     Route: 042
     Dates: start: 20210728, end: 20210728
  53. DEXAMETHASONE SODIUM PHOSPHATE [Concomitant]
     Active Substance: DEXAMETHASONE SODIUM PHOSPHATE
     Dosage: 5 MILLIGRAM
     Route: 042
     Dates: start: 20210729, end: 20210729
  54. DEXAMETHASONE SODIUM PHOSPHATE [Concomitant]
     Active Substance: DEXAMETHASONE SODIUM PHOSPHATE
     Dosage: 5 MILLIGRAM
     Route: 065
     Dates: start: 20210701, end: 202204
  55. INSULIN HUMAN [Concomitant]
     Active Substance: INSULIN HUMAN
     Indication: Type 2 diabetes mellitus
     Dosage: UNK, QD
     Route: 058
     Dates: start: 20210815, end: 20210815
  56. INSULIN HUMAN [Concomitant]
     Active Substance: INSULIN HUMAN
     Dosage: UNK, QD
     Route: 058
     Dates: start: 20210819, end: 20210819
  57. INSULIN HUMAN [Concomitant]
     Active Substance: INSULIN HUMAN
     Dosage: UNK, QD
     Route: 058
     Dates: start: 20210818, end: 20210818
  58. THROMBOPOIETIN [Concomitant]
     Active Substance: THROMBOPOIETIN
     Indication: Platelet count
     Dosage: UNK UNK, QD
     Route: 058
     Dates: start: 20210825, end: 20210825
  59. THROMBOPOIETIN [Concomitant]
     Active Substance: THROMBOPOIETIN
     Dosage: UNK UNK, QD
     Route: 058
     Dates: start: 20210823, end: 20210823
  60. THROMBOPOIETIN [Concomitant]
     Active Substance: THROMBOPOIETIN
     Dosage: UNK UNK, QD
     Route: 058
     Dates: start: 20210813, end: 20210813
  61. THROMBOPOIETIN [Concomitant]
     Active Substance: THROMBOPOIETIN
     Dosage: UNK UNK, QD
     Route: 058
     Dates: start: 20210810, end: 20210810
  62. THROMBOPOIETIN [Concomitant]
     Active Substance: THROMBOPOIETIN
     Dosage: UNK UNK, QD
     Route: 058
     Dates: start: 20210710, end: 20210730
  63. GRANULOCYTE COLONY-STIMULATING FACTOR NOS [Concomitant]
     Active Substance: GRANULOCYTE COLONY-STIMULATING FACTOR NOS
     Dosage: 200 MICROGRAM, QD
     Route: 058
     Dates: start: 20210827, end: 20210827
  64. DEXAMETHASONE ACETATE [Concomitant]
     Active Substance: DEXAMETHASONE ACETATE
     Indication: Plasma cell myeloma
     Dosage: UNK UNK, QD
     Route: 048
     Dates: start: 20210827, end: 20210831
  65. OMEPRAZOLE [Concomitant]
     Active Substance: OMEPRAZOLE
     Indication: Prophylaxis
     Dosage: 20 MILLIGRAM, BID
     Route: 048
     Dates: start: 20210827, end: 20210911
  66. POTASSIUM CHLORIDE [Concomitant]
     Active Substance: POTASSIUM CHLORIDE
     Indication: Supplementation therapy
     Dosage: 1 GRAM, TID
     Route: 048
     Dates: start: 20210722, end: 20210728
  67. MEROPENEM [Concomitant]
     Active Substance: MEROPENEM
     Indication: Infection prophylaxis
     Dosage: 0.2 GRAM
     Route: 042
     Dates: start: 20210728, end: 20210730
  68. MEROPENEM [Concomitant]
     Active Substance: MEROPENEM
     Dosage: 0.2 GRAM
     Route: 042
     Dates: start: 20210727, end: 20210727
  69. FLUCONAZOLE [Concomitant]
     Active Substance: FLUCONAZOLE
     Indication: Antifungal prophylaxis
     Dosage: 0.4 GRAM, QD
     Route: 042
     Dates: start: 20210728, end: 20210730
  70. FLUCONAZOLE [Concomitant]
     Active Substance: FLUCONAZOLE
     Dosage: 0.6 GRAM
     Route: 042
     Dates: start: 20210727, end: 20210727
  71. FLUCONAZOLE [Concomitant]
     Active Substance: FLUCONAZOLE
     Dosage: 0.4 GRAM
     Route: 042
     Dates: start: 20210728, end: 20210728
  72. ALBUMIN HUMAN [Concomitant]
     Active Substance: ALBUMIN HUMAN
     Indication: Medical diet
     Dosage: 10 GRAM
     Route: 042
     Dates: start: 20210727, end: 20210727
  73. TORSEMIDE [Concomitant]
     Active Substance: TORSEMIDE
     Indication: Prophylaxis
     Dosage: 20 MILLIGRAM
     Route: 042
     Dates: start: 20210727, end: 20210727
  74. DOXORUBICIN HYDROCHLORIDE [Concomitant]
     Active Substance: DOXORUBICIN HYDROCHLORIDE
     Dosage: 20 MILLIGRAM
     Route: 065

REACTIONS (4)
  - Plasma cell myeloma [Fatal]
  - Pleural effusion [Not Recovered/Not Resolved]
  - Pneumonia [Recovered/Resolved]
  - Off label use [Unknown]

NARRATIVE: CASE EVENT DATE: 20210729
